FAERS Safety Report 4524025-0 (Version None)
Quarter: 2004Q4

REPORT INFORMATION
  Report Type: 
  Country: None (occurrence: None)
  Receive Date: 20041209
  Receipt Date: 20041122
  Transmission Date: 20050328
  Serious: Yes (Death, Hospitalization)
  Sender: FDA-Public Use
  Company Number: F01200301348

PATIENT
  Age: 78 Year
  Sex: Male

DRUGS (6)
  1. (OXALIPLATIN)-SOLUTION-290 MG [Suspect]
     Indication: COLON CANCER
     Dosage: 290 MG, Q3W, INTRAVENOUS NOS
     Route: 042
     Dates: start: 20031021, end: 20031021
  2. (OXALIPLATIN)-SOLUTION-290 MG [Suspect]
     Indication: SURGERY
     Dosage: 290 MG, Q3W, INTRAVENOUS NOS
     Route: 042
     Dates: start: 20031021, end: 20031021
  3. (CAPECITABINE) - TABLET - 1000 MG/M2 [Suspect]
     Dosage: 1000 MG/M2 TWICE A DAY PER ORAL FROM D1 TO D15, ORAL
     Route: 048
     Dates: start: 20031021, end: 20031104
  4. VIOXX [Concomitant]
  5. COUMADIN [Concomitant]
  6. VITAMIN B COMPLEX CAP [Concomitant]

REACTIONS (21)
  - AORTIC ATHEROSCLEROSIS [None]
  - BENIGN PROSTATIC HYPERPLASIA [None]
  - BLISTER [None]
  - BLOOD CREATININE INCREASED [None]
  - BLOOD UREA INCREASED [None]
  - COAGULATION TIME PROLONGED [None]
  - COMA [None]
  - CONFUSIONAL STATE [None]
  - CORONARY ARTERY ATHEROSCLEROSIS [None]
  - DEHYDRATION [None]
  - DIARRHOEA [None]
  - FAECAL OCCULT BLOOD POSITIVE [None]
  - GASTRITIS EROSIVE [None]
  - HYPOVOLAEMIC SHOCK [None]
  - INTERNATIONAL NORMALISED RATIO INCREASED [None]
  - MARKEDLY REDUCED DIETARY INTAKE [None]
  - NAUSEA [None]
  - RENAL CYST [None]
  - SOMNOLENCE [None]
  - UPPER GASTROINTESTINAL HAEMORRHAGE [None]
  - VARICES OESOPHAGEAL [None]
